FAERS Safety Report 16150574 (Version 2)
Quarter: 2023Q1

REPORT INFORMATION
  Report Type: Report from Study
  Country: PL (occurrence: None)
  Receive Date: 20190403
  Receipt Date: 20230118
  Transmission Date: 20230418
  Serious: No
  Sender: FDA-Public Use
  Company Number: PL-ROCHE-2036223

PATIENT
  Age: 71 Year
  Sex: Male
  Weight: 86 kg

DRUGS (15)
  1. ATEZOLIZUMAB [Suspect]
     Active Substance: ATEZOLIZUMAB
     Indication: Malignant melanoma
     Dosage: DATE OF MOST RECENT DOSE PRIOR TO ANAPHYLACTIC REACTION: 04/DEC/2017?DATE OF MOST RECENT DOSE PRIOR
     Route: 042
     Dates: start: 20171120
  2. VEMURAFENIB [Suspect]
     Active Substance: VEMURAFENIB
     Indication: Malignant melanoma
     Dosage: DATE OF MOST RECENT DOSE PRIOR TO WHOLE BODY TREMOR: 04/DEC/2017?DATE OF MOST RECENT DOSE PRIOR TO I
     Route: 048
     Dates: start: 20171023
  3. COBIMETINIB [Suspect]
     Active Substance: COBIMETINIB
     Indication: Malignant melanoma
     Dosage: DATE OF MOST RECENT DOSE (40 MG) PRIOR TO WHOLE BODY TREMOR: 04/DEC/2017?DATE OF MOST RECENT DOSE (4
     Route: 048
     Dates: start: 20171023
  4. METFORMIN HYDROCHLORIDE [Concomitant]
     Active Substance: METFORMIN HYDROCHLORIDE
     Indication: Diabetes mellitus
     Route: 048
     Dates: end: 20180911
  5. GLIMEPIRIDE [Concomitant]
     Active Substance: GLIMEPIRIDE
     Indication: Diabetes mellitus
     Route: 048
     Dates: end: 20180911
  6. INSULIN HUMAN ISOPHANE RECOMBINANT [Concomitant]
     Indication: Diabetes mellitus
     Dosage: DOSE: 14 OTHER
     Route: 058
     Dates: start: 20170903, end: 20180911
  7. NEBIVOLOL [Concomitant]
     Active Substance: NEBIVOLOL
     Indication: Hypertension
     Route: 048
     Dates: end: 20180911
  8. RAMIPRIL [Concomitant]
     Active Substance: RAMIPRIL
     Indication: Hypertension
     Route: 048
     Dates: end: 20180911
  9. AMLODIPINE [Concomitant]
     Active Substance: AMLODIPINE BESYLATE
     Indication: Hypertension
     Route: 048
     Dates: end: 20180911
  10. DOXAZOSIN [Concomitant]
     Active Substance: DOXAZOSIN MESYLATE
     Indication: Hypertension
     Route: 048
     Dates: start: 20170509, end: 20180911
  11. CLEMASTINE FUMARATE [Concomitant]
     Active Substance: CLEMASTINE FUMARATE
     Indication: Tremor
     Route: 042
     Dates: start: 20171204, end: 20171204
  12. CLEMASTINE FUMARATE [Concomitant]
     Active Substance: CLEMASTINE FUMARATE
     Route: 042
     Dates: start: 20171229, end: 20171229
  13. HYDROCORTISONE [Concomitant]
     Active Substance: HYDROCORTISONE
     Route: 042
     Dates: start: 20171229, end: 20171229
  14. CAPTOPRILUM [Concomitant]
     Indication: Hypertension
     Dates: start: 20171229, end: 20171229
  15. AMOXICILLIN TRIHYDRATE [Concomitant]
     Active Substance: AMOXICILLIN
     Indication: Pneumonia
     Route: 048
     Dates: start: 20171222

REACTIONS (2)
  - Infusion related reaction [Recovered/Resolved]
  - Tremor [Recovered/Resolved]

NARRATIVE: CASE EVENT DATE: 20171204
